FAERS Safety Report 8780353 (Version 1)
Quarter: 2012Q4

REPORT INFORMATION
  Report Type: Spontaneous
  Country: US (occurrence: None)
  Receive Date: 20120905
  Receipt Date: 20120905
  Transmission Date: 20130627
  Serious: No
  Sender: FDA-Public Use
  Company Number: None

PATIENT
  Age: 68 Year
  Sex: Female
  Weight: 70.31 kg

DRUGS (1)
  1. METHYLPREDNISOLONE [Suspect]
     Dosage: 6 Days  6-1st Day   5-2nd Day  4-3Day   3-4Day  2-5Day  1-6Day

REACTIONS (6)
  - Product substitution issue [None]
  - Flushing [None]
  - Pyrexia [None]
  - Nausea [None]
  - Blood pressure increased [None]
  - Insomnia [None]
